FAERS Safety Report 22006050 (Version 3)
Quarter: 2023Q1

REPORT INFORMATION
  Report Type: Spontaneous
  Country: BR (occurrence: BR)
  Receive Date: 20230217
  Receipt Date: 20230321
  Transmission Date: 20230418
  Serious: Yes (Hospitalization, Other)
  Sender: FDA-Public Use
  Company Number: BR-JNJFOC-20230221614

PATIENT
  Age: 49 Year
  Sex: Male

DRUGS (1)
  1. HALOPERIDOL DECANOATE [Suspect]
     Active Substance: HALOPERIDOL DECANOATE
     Indication: Schizophrenia
     Dosage: HALDOL DECANOATE - 03 AMP IM EVERY 15/15 DAYS
     Route: 030

REACTIONS (11)
  - Hospitalisation [Unknown]
  - Substance abuse [Unknown]
  - Akathisia [Unknown]
  - Abnormal behaviour [Unknown]
  - Alcohol use [Unknown]
  - Aggression [Unknown]
  - Persecutory delusion [Unknown]
  - Adverse event [Not Recovered/Not Resolved]
  - Therapeutic response decreased [Unknown]
  - Treatment noncompliance [Unknown]
  - Off label use [Unknown]
